FAERS Safety Report 7590077-7 (Version None)
Quarter: 2011Q3

REPORT INFORMATION
  Report Type: 
  Country: None (occurrence: None)
  Receive Date: 20110705
  Receipt Date: 20110623
  Transmission Date: 20111222
  Serious: Yes (Hospitalization)
  Sender: FDA-Public Use
  Company Number: B0710139A

PATIENT
  Sex: Male
  Weight: 8.7 kg

DRUGS (18)
  1. ALKERAN [Suspect]
     Dosage: 12.5MG PER DAY
     Route: 042
     Dates: start: 20090709, end: 20090710
  2. THIOTEPA [Suspect]
     Indication: STEM CELL TRANSPLANT
     Dosage: 70MG PER DAY
     Dates: start: 20090702, end: 20090703
  3. HEPARIN SODIUM [Concomitant]
     Route: 042
     Dates: start: 20090701, end: 20090728
  4. ISOTONIC SODIUM CHLORIDE SOLUTION [Concomitant]
     Route: 042
     Dates: start: 20090708, end: 20090727
  5. THIOTEPA [Suspect]
     Dosage: 70MG PER DAY
     Dates: start: 20090709, end: 20090710
  6. MUCODYNE [Concomitant]
     Route: 048
     Dates: start: 20090701, end: 20090714
  7. AZUNOL [Concomitant]
     Route: 061
     Dates: start: 20090709, end: 20090710
  8. PROBIOTICS [Concomitant]
     Route: 048
     Dates: start: 20090707, end: 20090804
  9. SULFAMETHOXAZOLE [Concomitant]
     Route: 048
     Dates: start: 20090701, end: 20090702
  10. ADSORBIN [Concomitant]
     Route: 048
     Dates: start: 20090707, end: 20090804
  11. ALKERAN [Suspect]
     Indication: STEM CELL TRANSPLANT
     Dosage: 12.5MG PER DAY
     Route: 042
     Dates: start: 20090702, end: 20090703
  12. SOLDEM [Concomitant]
     Route: 042
     Dates: start: 20090701, end: 20090724
  13. ERYTHROCIN LACTOBIONATE [Concomitant]
     Route: 048
     Dates: start: 20090701, end: 20090714
  14. SIMPLE SYRUP [Concomitant]
     Route: 048
     Dates: start: 20090701, end: 20090811
  15. KYTRIL [Concomitant]
     Route: 042
     Dates: start: 20090702, end: 20090704
  16. FLUMARIN [Concomitant]
     Route: 042
     Dates: start: 20090708, end: 20090714
  17. URSO 250 [Concomitant]
     Route: 048
     Dates: start: 20090702, end: 20090811
  18. POTASSIUM CHLORIDE [Concomitant]
     Route: 042
     Dates: start: 20090701, end: 20090713

REACTIONS (1)
  - FEBRILE NEUTROPENIA [None]
